FAERS Safety Report 22193377 (Version 1)
Quarter: 2023Q2

REPORT INFORMATION
  Report Type: Spontaneous
  Country: US (occurrence: US)
  Receive Date: 20230410
  Receipt Date: 20230410
  Transmission Date: 20230722
  Serious: No
  Sender: FDA-Public Use
  Company Number: US-Kaleo, Inc.-2023KL000023

PATIENT
  Age: 5 Year
  Sex: Male

DRUGS (1)
  1. AUVI-Q [Suspect]
     Active Substance: EPINEPHRINE

REACTIONS (2)
  - Device issue [Not Recovered/Not Resolved]
  - Device issue [Not Recovered/Not Resolved]
